FAERS Safety Report 16153697 (Version 1)
Quarter: 2019Q2

REPORT INFORMATION
  Report Type: Spontaneous
  Country: CN (occurrence: CN)
  Receive Date: 20190403
  Receipt Date: 20190403
  Transmission Date: 20190711
  Serious: Yes (Hospitalization, Disabling)
  Sender: FDA-Public Use
  Company Number: CN-BAXTER-2019BAX006596

PATIENT
  Age: 60 Year
  Sex: Female
  Weight: 55 kg

DRUGS (6)
  1. DUOPAFEI [Suspect]
     Active Substance: DOCETAXEL
     Indication: BREAST CANCER
     Dosage: DOCETAXEL 40 MG + 0.9% SODIUM CHLORIDE INJECTION 100ML, ON DAY 1 IVGTT ST
     Route: 041
     Dates: start: 20181215, end: 20181215
  2. 0.9% SODIUM CHLORIDE INJECTION [Suspect]
     Active Substance: SODIUM CHLORIDE
     Dosage: DOCETAXEL 80 MG + 0.9% SODIUM CHLORIDE INJECTION 250 ML, IVGTT ON DAY 1 ST Q21D
     Route: 041
     Dates: start: 20181215, end: 20181215
  3. DUOPAFEI [Suspect]
     Active Substance: DOCETAXEL
     Dosage: DOCETAXEL 80 MG + 0.9% SODIUM CHLORIDE INJECTION 250 ML, IVGTT ON DAY 1 ST Q21D
     Route: 041
     Dates: start: 20181215, end: 20181215
  4. ENDOXAN [Suspect]
     Active Substance: CYCLOPHOSPHAMIDE
     Indication: BREAST CANCER
     Dosage: CYCLOPHOSPHAMIDE 1000 MG + 0.9% SODIUM CHLORIDE INJECTION 100 ML, IVGTT ST, Q21D
     Route: 041
     Dates: start: 20181215, end: 20181215
  5. 0.9% SODIUM CHLORIDE INJECTION [Suspect]
     Active Substance: SODIUM CHLORIDE
     Indication: MEDICATION DILUTION
     Dosage: DOCETAXEL 40 MG + 0.9% SODIUM CHLORIDE INJECTION 100 ML, ON DAY 1 IVGTT ST
     Route: 041
     Dates: start: 20181215, end: 20181215
  6. 0.9% SODIUM CHLORIDE INJECTION [Suspect]
     Active Substance: SODIUM CHLORIDE
     Dosage: CYCLOPHOSPHAMIDE 1000 MG + 0.9% SODIUM CHLORIDE INJECTION 100 ML, IVGTT ST, Q21D
     Route: 041
     Dates: start: 20181215, end: 20181215

REACTIONS (2)
  - Bone marrow failure [Recovered/Resolved]
  - Hepatic function abnormal [Recovered/Resolved]

NARRATIVE: CASE EVENT DATE: 20181230
